FAERS Safety Report 13348240 (Version 1)
Quarter: 2017Q1

REPORT INFORMATION
  Report Type: Other
  Country: DE (occurrence: DE)
  Receive Date: 20170319
  Receipt Date: 20170319
  Transmission Date: 20170428
  Serious: Yes (Life-Threatening, Hospitalization, Other)
  Sender: FDA-Public Use
  Company Number: DE-DEXPHARM-20170301

PATIENT
  Age: 79 Year
  Sex: Female
  Weight: 75 kg

DRUGS (6)
  1. ACETYLSALICYILIC ACID [Concomitant]
     Active Substance: ASPIRIN
     Dosage: EVERY OTHER DAY IN THE MORNING
  2. OMEPRAZOLE. [Suspect]
     Active Substance: OMEPRAZOLE
     Dosage: ONE DOSE IN THE MORNING
  3. TRAMADOL. [Suspect]
     Active Substance: TRAMADOL
     Indication: HEADACHE
  4. BISOPROLOL [Suspect]
     Active Substance: BISOPROLOL
     Dosage: HALF DOSE IN THE MORNING
  5. RAMIPRIL. [Suspect]
     Active Substance: RAMIPRIL
     Dosage: HALF DOSE IN THE MORNING
  6. BROMAZEPAM [Concomitant]
     Active Substance: BROMAZEPAM
     Dosage: HALF DOSE BEFORE BED

REACTIONS (2)
  - Hypoglycaemia [Recovered/Resolved]
  - Hypotension [Recovered/Resolved]
